FAERS Safety Report 25869364 (Version 1)
Quarter: 2025Q4

REPORT INFORMATION
  Report Type: Spontaneous
  Country: US (occurrence: US)
  Receive Date: 20251001
  Receipt Date: 20251001
  Transmission Date: 20260118
  Serious: No
  Sender: BAYER HEALTHCARE PHARMACEUTICALS INC.
  Company Number: US-BAYER-2025A129694

PATIENT
  Age: 28 Year
  Sex: Female

DRUGS (2)
  1. ACARBOSE [Suspect]
     Active Substance: ACARBOSE
  2. STARCH, CORN [Concomitant]
     Active Substance: STARCH, CORN

REACTIONS (1)
  - Drug ineffective [None]
